FAERS Safety Report 7939438-4 (Version None)
Quarter: 2011Q4

REPORT INFORMATION
  Report Type: 
  Country: None (occurrence: None)
  Receive Date: 20111125
  Receipt Date: 20111114
  Transmission Date: 20120403
  Serious: Yes (Hospitalization, Other)
  Sender: FDA-Public Use
  Company Number: FI-ROCHE-633204

PATIENT
  Sex: Female

DRUGS (8)
  1. AZATHIOPRINE [Suspect]
     Indication: BEHCET'S SYNDROME
     Route: 048
     Dates: start: 20080601, end: 20080801
  2. MYCOPHENOLATE MOFETIL (CELLCEPT) [Suspect]
     Indication: BEHCET'S SYNDROME
     Route: 048
     Dates: start: 20080801, end: 20100901
  3. CYCLOSPORINE [Suspect]
     Indication: BEHCET'S SYNDROME
     Route: 048
     Dates: start: 20080201, end: 20080201
  4. MABTHERA [Suspect]
     Dosage: SECOND CYCLE OF RITUXIMAB
     Dates: start: 20100201, end: 20100301
  5. METHOTREXATE [Suspect]
     Indication: BEHCET'S SYNDROME
     Route: 048
     Dates: start: 20070801, end: 20080601
  6. PREDNISOLONE [Suspect]
     Indication: BEHCET'S SYNDROME
     Route: 048
     Dates: start: 20070501
  7. MABTHERA [Suspect]
     Indication: BEHCET'S SYNDROME
     Route: 042
     Dates: start: 20090101, end: 20090201
  8. MYCOPHENOLATE MOFETIL (CELLCEPT) [Suspect]
     Dates: start: 20101201, end: 20110201

REACTIONS (7)
  - LYMPHOPENIA [None]
  - PNEUMONIA [None]
  - CYTOMEGALOVIRUS COLITIS [None]
  - PROGRESSIVE MULTIFOCAL LEUKOENCEPHALOPATHY [None]
  - PNEUMONIA CYTOMEGALOVIRAL [None]
  - HERPES VIRUS INFECTION [None]
  - UROSEPSIS [None]
